FAERS Safety Report 18785032 (Version 1)
Quarter: 2021Q1

REPORT INFORMATION
  Report Type: Spontaneous
  Country: AU (occurrence: AU)
  Receive Date: 20210126
  Receipt Date: 20210126
  Transmission Date: 20210419
  Serious: Yes (Other)
  Sender: FDA-Public Use
  Company Number: AU-IPSEN BIOPHARMACEUTICALS, INC.-2021-01863

PATIENT
  Age: 68 Year
  Sex: Male

DRUGS (13)
  1. LANREOTIDE ACETATE [Suspect]
     Active Substance: LANREOTIDE ACETATE
     Indication: PRODUCT USED FOR UNKNOWN INDICATION
     Dosage: DOSE NOT REPORTED
     Route: 065
  2. HEPARIN SODIUM. [Concomitant]
     Active Substance: HEPARIN SODIUM
  3. OCTREOTIDE. [Suspect]
     Active Substance: OCTREOTIDE
     Indication: PRODUCT USED FOR UNKNOWN INDICATION
     Dosage: DOSE NOT REPORTED
  4. ATORVASTATIN [Concomitant]
     Active Substance: ATORVASTATIN
  5. ASPIRIN. [Concomitant]
     Active Substance: ASPIRIN
  6. RANITIDINE. [Concomitant]
     Active Substance: RANITIDINE
  7. DEXAMETHASONE. [Concomitant]
     Active Substance: DEXAMETHASONE
  8. SANDOSTATIN LAR DEPOT [Suspect]
     Active Substance: OCTREOTIDE ACETATE
     Indication: PRODUCT USED FOR UNKNOWN INDICATION
     Dosage: DOSE NOT REPORTED
  9. DILTIAZEM. [Concomitant]
     Active Substance: DILTIAZEM
  10. LUTETIUM (177LU) CHLORIDE [Suspect]
     Active Substance: LUTETIUM CHLORIDE LU-177
     Indication: PRODUCT USED FOR UNKNOWN INDICATION
     Dosage: DOSE NOT REPORTED
  11. PANTOPRAZOLE [Concomitant]
     Active Substance: PANTOPRAZOLE
  12. PHENOXYBENZAMINE HYDROCHLORIDE. [Concomitant]
     Active Substance: PHENOXYBENZAMINE HYDROCHLORIDE
  13. CYPROHEPTADINE HYDROCHLORIDE. [Concomitant]
     Active Substance: CYPROHEPTADINE HYDROCHLORIDE

REACTIONS (18)
  - Circulatory collapse [Unknown]
  - Loss of consciousness [Unknown]
  - Ischaemia [Unknown]
  - Dizziness [Unknown]
  - Diarrhoea [Unknown]
  - Product administration error [Unknown]
  - Angina pectoris [Unknown]
  - Carcinoid crisis [Unknown]
  - Malignant neoplasm progression [Unknown]
  - Metastases to liver [Unknown]
  - Cardiac arrest [Unknown]
  - Electrocardiogram QT prolonged [Unknown]
  - Flushing [Unknown]
  - Therapeutic response decreased [Unknown]
  - Acute myocardial infarction [Unknown]
  - Coronary artery disease [Unknown]
  - Hypertension [Unknown]
  - Haemodynamic instability [Unknown]
